FAERS Safety Report 19779129 (Version 1)
Quarter: 2021Q3

REPORT INFORMATION
  Report Type: Spontaneous
  Country: US (occurrence: US)
  Receive Date: 20210830
  Receipt Date: 20210830
  Transmission Date: 20211014
  Serious: No
  Sender: FDA-Public Use
  Company Number: None

PATIENT
  Age: 59 Year
  Sex: Female

DRUGS (1)
  1. CAPECITABINE 500 MG [Suspect]
     Active Substance: CAPECITABINE
     Indication: SPLEEN DISORDER
     Route: 048
     Dates: start: 202106

REACTIONS (3)
  - Back pain [None]
  - Rash [None]
  - Abdominal pain [None]

NARRATIVE: CASE EVENT DATE: 20210816
